FAERS Safety Report 18758551 (Version 1)
Quarter: 2021Q1

REPORT INFORMATION
  Report Type: Spontaneous
  Country: GB (occurrence: GB)
  Receive Date: 20210120
  Receipt Date: 20210120
  Transmission Date: 20210419
  Serious: Yes (Hospitalization, Other)
  Sender: FDA-Public Use
  Company Number: GB-AUROBINDO-AUR-APL-2020-062563

PATIENT
  Age: 44 Year
  Sex: Male

DRUGS (8)
  1. COCODAMOL [Suspect]
     Active Substance: ACETAMINOPHEN\CODEINE PHOSPHATE
     Indication: BACK PAIN
     Dosage: 530 MILLIGRAM, DAILY (10 TABLETS OF 30MG/500 MG DAILY)
     Route: 065
  2. MIRTAZAPINE. [Concomitant]
     Active Substance: MIRTAZAPINE
     Indication: PRODUCT USED FOR UNKNOWN INDICATION
     Dosage: 30 MILLIGRAM, ONCE A DAY (AT NIGHT)
     Route: 065
  3. COCODAMOL [Suspect]
     Active Substance: ACETAMINOPHEN\CODEINE PHOSPHATE
     Dosage: 10 DOSAGE FORM, ONCE A DAY
     Route: 048
  4. ESOMEPRAZOLE. [Concomitant]
     Active Substance: ESOMEPRAZOLE MAGNESIUM
     Indication: PRODUCT USED FOR UNKNOWN INDICATION
     Dosage: 20 MILLIGRAM, ONCE A DAY  (OD)
     Route: 065
  5. CODEINE PHOSPHATE TABLETS 30MG [Suspect]
     Active Substance: CODEINE PHOSPHATE
     Indication: BACK PAIN
     Dosage: 530 MILLIGRAM, (10 TABLETS OF 30MG/500 MG DAILY)
     Route: 065
  6. FLUCLOXACILLIN [Suspect]
     Active Substance: FLUCLOXACILLIN
     Indication: CELLULITIS
  7. PARACETAMOL TABLET [Suspect]
     Active Substance: ACETAMINOPHEN
     Indication: BACK PAIN
     Dosage: 530 MILLIGRAM, (10 TABLETS OF 30MG/500 MG DAILY)
     Route: 065
  8. FLUCLOXACILLIN [Suspect]
     Active Substance: FLUCLOXACILLIN
     Indication: STAPHYLOCOCCAL INFECTION
     Dosage: UNK
     Route: 065

REACTIONS (25)
  - Pancytopenia [Recovered/Resolved]
  - Somnolence [Recovered/Resolved]
  - Pyrexia [Recovered/Resolved]
  - Tachycardia [Recovered/Resolved]
  - Deep vein thrombosis [Recovered/Resolved]
  - Kussmaul respiration [Recovered/Resolved]
  - Encephalopathy [Recovered/Resolved]
  - Hypoalbuminaemia [Recovered/Resolved]
  - Malaise [Recovered/Resolved]
  - Metabolic acidosis [Recovered/Resolved]
  - Hypotension [Recovered/Resolved]
  - Hypokalaemia [Recovered/Resolved]
  - Non-alcoholic steatohepatitis [Recovered/Resolved]
  - Myositis [Recovered/Resolved]
  - Tachypnoea [Recovered/Resolved]
  - Pyroglutamic acidosis [Recovered/Resolved]
  - Liver disorder [Recovered/Resolved]
  - Lactic acidosis [Recovered/Resolved]
  - Hyperammonaemia [Recovered/Resolved]
  - Hepatic steatosis [Recovered/Resolved]
  - Hepatic cirrhosis [Recovered/Resolved]
  - Sepsis [Recovered/Resolved]
  - Confusional state [Recovered/Resolved]
  - Peripheral circulatory failure [Recovered/Resolved]
  - General physical health deterioration [Recovered/Resolved]
